FAERS Safety Report 9394874 (Version 4)
Quarter: 2013Q3

REPORT INFORMATION
  Report Type: Report from Study
  Country: JP (occurrence: JP)
  Receive Date: 20130711
  Receipt Date: 20130906
  Transmission Date: 20140515
  Serious: Yes (Other)
  Sender: FDA-Public Use
  Company Number: JP-PFIZER INC-2013203718

PATIENT
  Age: 73 Year
  Sex: Male

DRUGS (5)
  1. ESTRACYT [Suspect]
     Indication: PROSTATE CANCER
     Dosage: 626.8 MG/DAY
     Route: 048
     Dates: start: 20111007, end: 20111008
  2. ESTRACYT [Suspect]
     Dosage: 313.4 MG/DAY
     Route: 048
     Dates: start: 20111009
  3. ESTRACYT [Suspect]
     Dosage: 313.4 MG/DAY
     Route: 048
     Dates: start: 20111014, end: 20120406
  4. ZOMETA [Concomitant]
     Dosage: UNK
     Dates: start: 20090904, end: 20120406
  5. NAUZELIN [Concomitant]
     Dosage: UNK
     Dates: start: 20111014, end: 20120406

REACTIONS (2)
  - Anaemia [Unknown]
  - Nausea [Recovered/Resolved]
